FAERS Safety Report 17713167 (Version 1)
Quarter: 2020Q2

REPORT INFORMATION
  Report Type: Spontaneous
  Country: US (occurrence: US)
  Receive Date: 20200427
  Receipt Date: 20200427
  Transmission Date: 20200714
  Serious: No
  Sender: FDA-Public Use
  Company Number: None

PATIENT
  Age: 70 Year
  Sex: Female
  Weight: 63 kg

DRUGS (11)
  1. VITAMINS NOS [Concomitant]
     Active Substance: VITAMINS
  2. VITAMIN C [Concomitant]
     Active Substance: ASCORBIC ACID
  3. MULTIVITAMIN [Concomitant]
     Active Substance: VITAMINS
  4. VITAMIN D [Concomitant]
     Active Substance: VITAMIN D NOS
  5. MYRBETRIC [Concomitant]
  6. PENTAZOCINE AND NALOXONE [Suspect]
     Active Substance: NALOXONE HYDROCHLORIDE\PENTAZOCINE HYDROCHLORIDE
     Indication: PAIN
     Dosage: ?          QUANTITY:1 CAPSULE(S);?
     Route: 048
  7. PRAVASTATIN. [Concomitant]
     Active Substance: PRAVASTATIN
  8. ASPIRIN 81MG [Concomitant]
     Active Substance: ASPIRIN
  9. NITROGLYCERIN PRN [Concomitant]
  10. CALCIUM [Concomitant]
     Active Substance: CALCIUM
  11. TUMERIC [Concomitant]
     Active Substance: HERBALS\TURMERIC

REACTIONS (6)
  - Paraesthesia [None]
  - Hypoaesthesia [None]
  - Hyperhidrosis [None]
  - Dizziness [None]
  - Nausea [None]
  - Urinary retention [None]

NARRATIVE: CASE EVENT DATE: 20200424
